FAERS Safety Report 5433854-0 (Version None)
Quarter: 2007Q3

REPORT INFORMATION
  Report Type: 
  Country: None (occurrence: None)
  Receive Date: 20070829
  Receipt Date: 20070815
  Transmission Date: 20080115
  Serious: Yes (Death, Life-Threatening, Hospitalization, Disabling)
  Sender: FDA-Public Use
  Company Number: 200705AGG00635

PATIENT
  Age: 65 Year
  Sex: Male

DRUGS (6)
  1. AGGRASTAT [Suspect]
     Indication: ANGINA UNSTABLE
     Dosage: INTRAVENOUS BOLUS, INTRAVENOUS DRIP
     Route: 040
     Dates: start: 20070327, end: 20070327
  2. AGGRASTAT [Suspect]
     Indication: ANGINA UNSTABLE
     Dosage: INTRAVENOUS BOLUS, INTRAVENOUS DRIP
     Route: 040
     Dates: start: 20070327, end: 20070401
  3. HEPARIN [Concomitant]
  4. ASPIRIN [Concomitant]
  5. PLAVIX [Concomitant]
  6. INSULIN [Concomitant]

REACTIONS (8)
  - BLOOD CREATINE PHOSPHOKINASE MB INCREASED [None]
  - CARDIOGENIC SHOCK [None]
  - CORONARY ARTERY STENOSIS [None]
  - EJECTION FRACTION DECREASED [None]
  - MULTI-ORGAN FAILURE [None]
  - RENAL FAILURE CHRONIC [None]
  - SEPTIC SHOCK [None]
  - TROPONIN T INCREASED [None]
